FAERS Safety Report 10431368 (Version 2)
Quarter: 2015Q1

REPORT INFORMATION
  Report Type: Spontaneous
  Country: US (occurrence: None)
  Receive Date: 20140815
  Receipt Date: 20150129
  Transmission Date: 20150720
  Serious: Yes (Hospitalization)
  Sender: FDA-Public Use
  Company Number: A-US2014-98953

PATIENT
  Age: 79 Year
  Sex: Female

DRUGS (1)
  1. OPSUMIT [Suspect]
     Active Substance: MACITENTAN
     Indication: PULMONARY ARTERIAL HYPERTENSION
     Route: 048
     Dates: start: 20140407, end: 20140507

REACTIONS (4)
  - Transfusion [None]
  - Fatigue [None]
  - Nausea [None]
  - Haemoglobin decreased [None]

NARRATIVE: CASE EVENT DATE: 201405
